FAERS Safety Report 24395648 (Version 2)
Quarter: 2024Q4

REPORT INFORMATION
  Report Type: Spontaneous
  Country: US (occurrence: US)
  Receive Date: 20241004
  Receipt Date: 20241010
  Transmission Date: 20250115
  Serious: Yes (Death, Life-Threatening, Hospitalization)
  Sender: STRIDES
  Company Number: US-STRIDES ARCOLAB LIMITED-2024SP012677

PATIENT
  Sex: Male

DRUGS (2)
  1. LEVETIRACETAM [Interacting]
     Active Substance: LEVETIRACETAM
     Indication: Seizure
     Dosage: UNK
     Route: 065
  2. METHOTREXATE [Interacting]
     Active Substance: METHOTREXATE
     Indication: Psoriatic arthropathy
     Dosage: 2.5 MILLIGRAM, QD (2.5MG DAILY SIX DAYS PER WEEK SINCE AT LEAST A FEW MONTHS BEFORE PRESENTATION) (D
     Route: 065

REACTIONS (13)
  - Stomatitis [Fatal]
  - Rash erythematous [Fatal]
  - Acute kidney injury [Fatal]
  - Epidermal necrosis [Fatal]
  - Atrophy [Fatal]
  - Skin disorder [Fatal]
  - Drug interaction [Fatal]
  - Hypertransaminasaemia [Fatal]
  - Pancytopenia [Fatal]
  - Medication error [Fatal]
  - Multiple organ dysfunction syndrome [Fatal]
  - Pustule [Fatal]
  - Toxicity to various agents [Fatal]
